FAERS Safety Report 7095547-6 (Version None)
Quarter: 2010Q4

REPORT INFORMATION
  Report Type: 
  Country: None (occurrence: None)
  Receive Date: 20101111
  Receipt Date: 20101105
  Transmission Date: 20110411
  Serious: Yes (Other)
  Sender: FDA-Public Use
  Company Number: DE-ROXANE LABORATORIES, INC.-2010-RO-01468RO

PATIENT
  Age: 67 Year
  Sex: Female

DRUGS (4)
  1. ROPINIROLE [Suspect]
     Indication: PARKINSON'S DISEASE
  2. LEVODOPA/BENSERAZIDE [Suspect]
     Indication: PARKINSON'S DISEASE
  3. LEVODOPA/BENSERAZIDE [Suspect]
  4. RASAGILINE [Suspect]
     Indication: PARKINSON'S DISEASE

REACTIONS (4)
  - BRADYKINESIA [None]
  - DEPRESSION [None]
  - FREEZING PHENOMENON [None]
  - OEDEMA PERIPHERAL [None]
